FAERS Safety Report 10202132 (Version 2)
Quarter: 2014Q2

REPORT INFORMATION
  Report Type: Spontaneous
  Country: US (occurrence: US)
  Receive Date: 20140528
  Receipt Date: 20140528
  Transmission Date: 20141212
  Serious: No
  Sender: FDA-Public Use
  Company Number: US-BRISTOL-MYERS SQUIBB COMPANY-19964428

PATIENT
  Age: 61 Year
  Sex: Male
  Weight: 154.64 kg

DRUGS (3)
  1. GLUCOPHAGE TABS 1000 MG [Suspect]
     Indication: DIABETES MELLITUS
     Dosage: FOR ABOUT 10 YEARS?SUMMER OF 2013:RECEIVED A LOT NO. 1J68231A?GLUCOPHAGE 60 TABLETS
     Route: 048
  2. NORVASC [Concomitant]
  3. PRILOSEC [Concomitant]

REACTIONS (2)
  - Vomiting [Recovered/Resolved]
  - Product taste abnormal [Unknown]
